FAERS Safety Report 14031299 (Version 1)
Quarter: 2017Q4

REPORT INFORMATION
  Report Type: Spontaneous
  Country: FR (occurrence: FR)
  Receive Date: 20171003
  Receipt Date: 20171003
  Transmission Date: 20180321
  Serious: Yes (Other)
  Sender: FDA-Public Use
  Company Number: FR-MERCK KGAA-2028367

PATIENT
  Age: 76 Year
  Sex: Female

DRUGS (5)
  1. NOVOTHYROX [Suspect]
     Active Substance: LEVOTHYROXINE SODIUM
     Indication: HYPOTHYROIDISM
     Route: 048
     Dates: start: 201708
  2. CELIPROLOL [Concomitant]
     Active Substance: CELIPROLOL
  3. OXAZEPAM. [Concomitant]
     Active Substance: OXAZEPAM
  4. ALDACTONE [Concomitant]
     Active Substance: SPIRONOLACTONE
  5. PANTOPRAZOLE [Concomitant]
     Active Substance: PANTOPRAZOLE

REACTIONS (1)
  - Arrhythmia [Not Recovered/Not Resolved]

NARRATIVE: CASE EVENT DATE: 20170821
